FAERS Safety Report 25513604 (Version 1)
Quarter: 2025Q3

REPORT INFORMATION
  Report Type: Spontaneous
  Country: US (occurrence: US)
  Receive Date: 20250703
  Receipt Date: 20250703
  Transmission Date: 20251021
  Serious: No
  Sender: RADIUS PHARM
  Company Number: US-RADIUS HEALTH INC.-2024US009299

PATIENT
  Age: 70 Year
  Sex: Female

DRUGS (2)
  1. TYMLOS [Suspect]
     Active Substance: ABALOPARATIDE
     Indication: Bone disorder
     Route: 058
     Dates: start: 20241111, end: 20241111
  2. TYMLOS [Suspect]
     Active Substance: ABALOPARATIDE
     Route: 058
     Dates: start: 20241108, end: 20241108

REACTIONS (5)
  - Heart rate increased [Unknown]
  - Blood pressure decreased [Unknown]
  - Headache [Unknown]
  - Pruritus [Unknown]
  - Rash [Unknown]

NARRATIVE: CASE EVENT DATE: 20241108
